FAERS Safety Report 5928328-4 (Version None)
Quarter: 2008Q4

REPORT INFORMATION
  Report Type: 
  Country: None (occurrence: None)
  Receive Date: 20081023
  Receipt Date: 20081017
  Transmission Date: 20090506
  Serious: No
  Sender: FDA-Public Use
  Company Number: US-WYE-H06099008

PATIENT
  Sex: Male
  Weight: 74 kg

DRUGS (4)
  1. TORISEL [Suspect]
     Indication: RENAL CELL CARCINOMA
     Dosage: 25MG WEEKLY
     Route: 042
     Dates: start: 20080220, end: 20080227
  2. ATIVAN [Concomitant]
     Indication: ANXIETY
     Route: 048
  3. COMBIVENT [Concomitant]
     Indication: ASTHMA
     Dosage: PRN
     Route: 055
  4. VICODIN [Concomitant]
     Indication: PAIN
     Dosage: PRN
     Route: 048

REACTIONS (1)
  - RASH [None]
